FAERS Safety Report 10508520 (Version 1)
Quarter: 2014Q4

REPORT INFORMATION
  Report Type: Spontaneous
  Country: US (occurrence: None)
  Receive Date: 20141008
  Receipt Date: 20141008
  Transmission Date: 20150528
  Serious: Yes (Hospitalization, Disabling)
  Sender: FDA-Public Use
  Company Number: None

PATIENT
  Age: 82 Year
  Sex: Male

DRUGS (2)
  1. PIPERACILLIN/TAZOBACTAM [Suspect]
     Active Substance: PIPERACILLIN SODIUM\TAZOBACTAM SODIUM
     Indication: PNEUMONIA
     Route: 042
     Dates: start: 20140919, end: 20140919
  2. VANCOMYCIN [Suspect]
     Active Substance: VANCOMYCIN
     Indication: PNEUMONIA
     Route: 042
     Dates: start: 20140919, end: 20140919

REACTIONS (9)
  - Eye swelling [None]
  - Lip swelling [None]
  - Angioedema [None]
  - Vomiting [None]
  - Diarrhoea [None]
  - Pancreatitis [None]
  - Pneumonia [None]
  - Nausea [None]
  - Respiratory tract oedema [None]

NARRATIVE: CASE EVENT DATE: 20140919
